FAERS Safety Report 24696257 (Version 1)
Quarter: 2024Q4

REPORT INFORMATION
  Report Type: Other
  Country: US (occurrence: US)
  Receive Date: 20241204
  Receipt Date: 20241204
  Transmission Date: 20250115
  Serious: Yes (Death, Hospitalization)
  Sender: ORBION PHARMACEUTICALS PRIVATE LIMITED
  Company Number: US-OrBion Pharmaceuticals Private Limited-2166466

PATIENT
  Age: 47 Year
  Sex: Male

DRUGS (3)
  1. AMLODIPINE BESYLATE [Suspect]
     Active Substance: AMLODIPINE BESYLATE
     Indication: Intentional overdose
  2. TRIAMTERENE AND HYDROCHLOROTHIAZIDE [Suspect]
     Active Substance: HYDROCHLOROTHIAZIDE\TRIAMTERENE
  3. AMITRIPTYLINE HYDROCHLORIDE [Suspect]
     Active Substance: AMITRIPTYLINE HYDROCHLORIDE

REACTIONS (18)
  - Distributive shock [Fatal]
  - Intentional overdose [Fatal]
  - Acute respiratory distress syndrome [Fatal]
  - Peripheral ischaemia [Fatal]
  - Acute kidney injury [Fatal]
  - Troponin increased [Fatal]
  - Blood creatine phosphokinase increased [Fatal]
  - White blood cell count increased [Fatal]
  - Alanine aminotransferase increased [Fatal]
  - Aspartate aminotransferase increased [Fatal]
  - Blood lactic acid increased [Fatal]
  - Anion gap increased [Fatal]
  - Blood glucose increased [Fatal]
  - Blood creatinine increased [Fatal]
  - Blood bicarbonate decreased [Fatal]
  - Blood phosphorus decreased [Fatal]
  - Blood potassium decreased [Fatal]
  - Respiratory failure [Fatal]
